FAERS Safety Report 14110288 (Version 3)
Quarter: 2017Q4

REPORT INFORMATION
  Report Type: Spontaneous
  Country: US (occurrence: US)
  Receive Date: 20171020
  Receipt Date: 20171213
  Transmission Date: 20180321
  Serious: No
  Sender: FDA-Public Use
  Company Number: US-PFIZER INC-2017447759

PATIENT
  Age: 17 Year
  Sex: Male
  Weight: 97.52 kg

DRUGS (1)
  1. ADVIL [Suspect]
     Active Substance: IBUPROFEN
     Indication: HEADACHE
     Dosage: 400 MG, UNK  (2 ADVIL)
     Dates: start: 20170822, end: 20170822

REACTIONS (4)
  - Urine analysis abnormal [Not Recovered/Not Resolved]
  - Drug screen false positive [Unknown]
  - Product coating issue [Unknown]
  - Poor quality drug administered [Unknown]

NARRATIVE: CASE EVENT DATE: 20170828
